FAERS Safety Report 10653597 (Version 1)
Quarter: 2014Q4

REPORT INFORMATION
  Report Type: Spontaneous
  Country: DE (occurrence: DE)
  Receive Date: 20141216
  Receipt Date: 20141216
  Transmission Date: 20150529
  Serious: Yes (Other)
  Sender: FDA-Public Use
  Company Number: DE-DRREDDYS-GER/GER/14/0044936

PATIENT
  Age: 0 Year
  Sex: Male
  Weight: 3.58 kg

DRUGS (1)
  1. LAMOTRIGINE. [Suspect]
     Active Substance: LAMOTRIGINE
     Indication: PRODUCT USED FOR UNKNOWN INDICATION
     Route: 064
     Dates: start: 20120930, end: 20130628

REACTIONS (3)
  - Ephelides [Unknown]
  - Foetal exposure during pregnancy [Unknown]
  - Cafe au lait spots [Not Recovered/Not Resolved]
